FAERS Safety Report 5222159-9 (Version None)
Quarter: 2007Q1

REPORT INFORMATION
  Report Type: 
  Country: None (occurrence: None)
  Receive Date: 20070129
  Receipt Date: 20060811
  Transmission Date: 20070707
  Serious: No
  Sender: FDA-Public Use
  Company Number: US-GLAXOSMITHKLINE-A0616341A

PATIENT
  Age: 26 Year
  Sex: Male

DRUGS (3)
  1. WELLBUTRIN [Suspect]
     Indication: DEPRESSION
     Route: 048
     Dates: start: 20060501
  2. ADDERALL 10 [Concomitant]
  3. CLONAZEPAM [Concomitant]

REACTIONS (1)
  - INSOMNIA [None]
